FAERS Safety Report 7724451-2 (Version None)
Quarter: 2011Q3

REPORT INFORMATION
  Report Type: 
  Country: None (occurrence: None)
  Receive Date: 20110901
  Receipt Date: 20110819
  Transmission Date: 20111222
  Serious: Yes (Hospitalization)
  Sender: FDA-Public Use
  Company Number: US-GLAXOSMITHKLINE-A0873801A

PATIENT
  Age: 54 Year
  Sex: Male
  Weight: 87.6 kg

DRUGS (7)
  1. NIFEDIPINE [Concomitant]
  2. GLYBURIDE [Concomitant]
  3. LIPITOR [Concomitant]
  4. LISINOPRIL [Concomitant]
  5. AVANDIA [Suspect]
     Indication: DIABETES MELLITUS
     Dosage: 4MG PER DAY
     Route: 048
     Dates: start: 19990501, end: 20080201
  6. INSPRA [Concomitant]
  7. CIALIS [Concomitant]

REACTIONS (5)
  - CAROTID ARTERY DISEASE [None]
  - LEFT VENTRICULAR HYPERTROPHY [None]
  - VENTRICULAR ARRHYTHMIA [None]
  - HYPERTENSIVE HEART DISEASE [None]
  - MYOCARDIAL INFARCTION [None]
